FAERS Safety Report 8121988-1 (Version None)
Quarter: 2012Q1

REPORT INFORMATION
  Report Type: 
  Country: None (occurrence: None)
  Receive Date: 20120208
  Receipt Date: 20120131
  Transmission Date: 20120608
  Serious: Yes (Other)
  Sender: FDA-Public Use
  Company Number: JP-B.I. PHARMACEUTICALS,INC./RIDGEFIELD-2012-BP-01331YA

PATIENT
  Age: 80 Year
  Sex: Male

DRUGS (4)
  1. TAMSULOSIN HCL [Suspect]
     Indication: BENIGN PROSTATIC HYPERPLASIA
     Dosage: 0.2 MG
     Route: 048
     Dates: end: 20120117
  2. ANTI-PARKINSON AGENTS [Concomitant]
     Route: 048
  3. CARBIDOPA + LEVODOPA [Concomitant]
     Route: 048
  4. FP (SLEGILINE HYDROCHLORIDE) [Concomitant]
     Route: 048
     Dates: end: 20120117

REACTIONS (1)
  - LOSS OF CONSCIOUSNESS [None]
